FAERS Safety Report 12893480 (Version 1)
Quarter: 2016Q4

REPORT INFORMATION
  Report Type: Spontaneous
  Country: US (occurrence: US)
  Receive Date: 20161027
  Receipt Date: 20161027
  Transmission Date: 20170207
  Serious: No
  Sender: FDA-Public Use
  Company Number: None

PATIENT
  Age: 61 Year
  Sex: Male
  Weight: 93 kg

DRUGS (1)
  1. BUPRENORPHINE/NALOXONE ETHYPHARM/GOLDEN STATE [Suspect]
     Active Substance: BUPRENORPHINE\NALOXONE
     Indication: DRUG DEPENDENCE
     Route: 060
     Dates: start: 20150107, end: 20161027

REACTIONS (3)
  - Drug effect decreased [None]
  - Product substitution issue [None]
  - Drug dependence [None]

NARRATIVE: CASE EVENT DATE: 20161025
